FAERS Safety Report 16536556 (Version 1)
Quarter: 2019Q3

REPORT INFORMATION
  Report Type: Spontaneous
  Country: US (occurrence: US)
  Receive Date: 20190706
  Receipt Date: 20190706
  Transmission Date: 20191004
  Serious: No
  Sender: FDA-Public Use
  Company Number: US-JNJFOC-20190703825

PATIENT
  Age: 75 Year
  Sex: Female
  Weight: 52.21 kg

DRUGS (5)
  1. TYLENOL [Suspect]
     Active Substance: ACETAMINOPHEN
     Indication: SCOLIOSIS
  2. FISH OIL [Concomitant]
     Active Substance: FISH OIL
     Indication: PRODUCT USED FOR UNKNOWN INDICATION
     Route: 065
  3. TYLENOL [Suspect]
     Active Substance: ACETAMINOPHEN
     Indication: ARTHRITIS
     Route: 048
     Dates: start: 20190430, end: 20190506
  4. CENTRUM SILVER                     /07431401/ [Concomitant]
     Indication: PRODUCT USED FOR UNKNOWN INDICATION
     Route: 065
  5. BENADRYL [Concomitant]
     Active Substance: DIPHENHYDRAMINE HYDROCHLORIDE
     Indication: MULTIPLE ALLERGIES
     Route: 065

REACTIONS (2)
  - Incorrect dose administered [Unknown]
  - Foreign body in respiratory tract [Recovered/Resolved]

NARRATIVE: CASE EVENT DATE: 20190430
